FAERS Safety Report 24743470 (Version 1)
Quarter: 2024Q4

REPORT INFORMATION
  Report Type: Spontaneous
  Country: US (occurrence: None)
  Receive Date: 20241216
  Receipt Date: 20241216
  Transmission Date: 20250115
  Serious: Yes (Other)
  Sender: Public
  Company Number: None

PATIENT
  Age: 30 Year
  Sex: Female
  Weight: 74.25 kg

DRUGS (1)
  1. DAXXIFY [Suspect]
     Active Substance: DAXIBOTULINUMTOXIN A-LANM
     Indication: Skin wrinkling
     Dates: start: 20241007

REACTIONS (6)
  - Nasal congestion [None]
  - Headache [None]
  - Sinus pain [None]
  - Throat tightness [None]
  - Ear discomfort [None]
  - Ear discomfort [None]

NARRATIVE: CASE EVENT DATE: 20241007
